FAERS Safety Report 25147984 (Version 2)
Quarter: 2025Q3

REPORT INFORMATION
  Report Type: Report from Study
  Country: US (occurrence: US)
  Receive Date: 20250402
  Receipt Date: 20250810
  Transmission Date: 20251020
  Serious: Yes (Other)
  Sender: ALEXION PHARMACEUTICALS
  Company Number: US-ASTRAZENECA-202405USA002413US

PATIENT
  Age: 72 Year
  Sex: Female
  Weight: 82.086 kg

DRUGS (15)
  1. TEZSPIRE [Suspect]
     Active Substance: TEZEPELUMAB-EKKO
  2. TEZSPIRE [Suspect]
     Active Substance: TEZEPELUMAB-EKKO
  3. TEZSPIRE [Suspect]
     Active Substance: TEZEPELUMAB-EKKO
     Route: 065
  4. TEZSPIRE [Suspect]
     Active Substance: TEZEPELUMAB-EKKO
     Route: 065
  5. TEZSPIRE [Suspect]
     Active Substance: TEZEPELUMAB-EKKO
  6. TEZSPIRE [Suspect]
     Active Substance: TEZEPELUMAB-EKKO
  7. TEZSPIRE [Suspect]
     Active Substance: TEZEPELUMAB-EKKO
  8. TEZSPIRE [Suspect]
     Active Substance: TEZEPELUMAB-EKKO
  9. TEZSPIRE [Suspect]
     Active Substance: TEZEPELUMAB-EKKO
  10. TEZSPIRE [Suspect]
     Active Substance: TEZEPELUMAB-EKKO
  11. TEZSPIRE [Suspect]
     Active Substance: TEZEPELUMAB-EKKO
  12. TEZSPIRE [Suspect]
     Active Substance: TEZEPELUMAB-EKKO
  13. TEZSPIRE [Suspect]
     Active Substance: TEZEPELUMAB-EKKO
  14. FLUAD NOS [Suspect]
     Active Substance: INFLUENZA VIRUS VACCINE
     Route: 065
  15. PREDNISONE [Concomitant]
     Active Substance: PREDNISONE

REACTIONS (2)
  - Alopecia [Recovered/Resolved with Sequelae]
  - Dizziness [Unknown]

NARRATIVE: CASE EVENT DATE: 20241012
